FAERS Safety Report 4615795-1 (Version None)
Quarter: 2005Q2

REPORT INFORMATION
  Report Type: 
  Country: None (occurrence: None)
  Receive Date: 20050310
  Receipt Date: 20050207
  Transmission Date: 20051028
  Serious: Yes (Hospitalization)
  Sender: FDA-Public Use
  Company Number: F03200500021

PATIENT
  Age: 51 Year
  Sex: Female

DRUGS (2)
  1. OXALIPLATIN - SOLUTION [Suspect]
     Indication: RECTAL CANCER
     Dosage: INTRAVENOUS NOS
     Route: 042
     Dates: start: 20041227, end: 20041227
  2. CAPECITABINE - TABLET [Suspect]
     Indication: RECTAL CANCER
     Dosage: ORAL
     Route: 048
     Dates: start: 20041129, end: 20050106

REACTIONS (3)
  - HAEMOGLOBIN DECREASED [None]
  - HYPOALBUMINAEMIA [None]
  - SINUS TACHYCARDIA [None]
